FAERS Safety Report 8242232-0 (Version None)
Quarter: 2012Q1

REPORT INFORMATION
  Report Type: 
  Country: None (occurrence: None)
  Receive Date: 20120314
  Receipt Date: 20110725
  Transmission Date: 20120608
  Serious: Yes (Other)
  Sender: FDA-Public Use
  Company Number: PHHY2011US66739

PATIENT
  Age: 45 Year
  Sex: Female

DRUGS (3)
  1. FANAPT [Suspect]
     Dosage: 8 MG
  2. FANAPT [Suspect]
     Dosage: TITRATION PACK
  3. FANAPT [Suspect]
     Dosage: 4 MG, QD
     Dates: start: 20100101

REACTIONS (2)
  - DEPRESSION [None]
  - WRONG TECHNIQUE IN DRUG USAGE PROCESS [None]
